FAERS Safety Report 6202617-0 (Version None)
Quarter: 2009Q2

REPORT INFORMATION
  Report Type: 
  Country: None (occurrence: None)
  Receive Date: 20090520
  Receipt Date: 20090507
  Transmission Date: 20091009
  Serious: Yes (Hospitalization)
  Sender: FDA-Public Use
  Company Number: URSO-2009-003 FUP#1

PATIENT
  Age: 65 Year
  Sex: Female

DRUGS (21)
  1. URSO 250 [Suspect]
     Indication: ANGINA PECTORIS
     Dosage: 600 MG/DAY ORAL
     Route: 048
     Dates: end: 20081229
  2. URSO 250 [Suspect]
     Indication: ARTERIOSCLEROSIS OBLITERANS
     Dosage: 600 MG/DAY ORAL
     Route: 048
     Dates: end: 20081229
  3. URSO 250 [Suspect]
     Indication: HYPERTENSION
     Dosage: 600 MG/DAY ORAL
     Route: 048
     Dates: end: 20081229
  4. URSO 250 [Suspect]
     Indication: ANGINA PECTORIS
     Dosage: 600 MG/DAY ORAL
     Route: 048
     Dates: start: 20081230
  5. URSO 250 [Suspect]
     Indication: ARTERIOSCLEROSIS OBLITERANS
     Dosage: 600 MG/DAY ORAL
     Route: 048
     Dates: start: 20081230
  6. URSO 250 [Suspect]
     Indication: HYPERTENSION
     Dosage: 600 MG/DAY ORAL
     Route: 048
     Dates: start: 20081230
  7. PANALDINE (TICLOPIDINE HYDROCHLORIDE) [Suspect]
     Indication: ANGINA PECTORIS
     Dosage: 2 TABLETS ORAL; 200MG
     Route: 048
     Dates: end: 20081226
  8. PANALDINE (TICLOPIDINE HYDROCHLORIDE) [Suspect]
     Indication: ARTERIOSCLEROSIS OBLITERANS
     Dosage: 2 TABLETS ORAL; 200MG
     Route: 048
     Dates: end: 20081226
  9. PANALDINE (TICLOPIDINE HYDROCHLORIDE) [Suspect]
     Indication: HYPERTENSION
     Dosage: 2 TABLETS ORAL; 200MG
     Route: 048
     Dates: end: 20081226
  10. ASPIRIN [Suspect]
     Indication: ANGINA PECTORIS
     Dosage: 2 TABLETS ORAL; 200MG
     Route: 048
     Dates: end: 20081226
  11. ASPIRIN [Suspect]
     Indication: ARTERIOSCLEROSIS OBLITERANS
     Dosage: 2 TABLETS ORAL; 200MG
     Route: 048
     Dates: end: 20081226
  12. ASPIRIN [Suspect]
     Indication: HYPERTENSION
     Dosage: 2 TABLETS ORAL; 200MG
     Route: 048
     Dates: end: 20081226
  13. DIOVAN [Suspect]
     Indication: ANGINA PECTORIS
     Dosage: 1 TABLET ORAL; 40MG
     Route: 048
     Dates: end: 20081228
  14. DIOVAN [Suspect]
     Indication: ARTERIOSCLEROSIS OBLITERANS
     Dosage: 1 TABLET ORAL; 40MG
     Route: 048
     Dates: end: 20081228
  15. DIOVAN [Suspect]
     Indication: HYPERTENSION
     Dosage: 1 TABLET ORAL; 40MG
     Route: 048
     Dates: end: 20081228
  16. DIOVAN [Suspect]
     Indication: ANGINA PECTORIS
     Dosage: 1 TABLET ORAL; 40MG
     Route: 048
     Dates: end: 20081229
  17. DIOVAN [Suspect]
     Indication: ARTERIOSCLEROSIS OBLITERANS
     Dosage: 1 TABLET ORAL; 40MG
     Route: 048
     Dates: end: 20081229
  18. DIOVAN [Suspect]
     Indication: HYPERTENSION
     Dosage: 1 TABLET ORAL; 40MG
     Route: 048
     Dates: end: 20081229
  19. PARIET (SODIUM RABEPRAZOLE) [Suspect]
     Dosage: 1 TABLET ORAL
     Route: 048
     Dates: end: 20081228
  20. PLETAL [Concomitant]
  21. PARIET (SODIUM RABEPRAZOLE) [Concomitant]

REACTIONS (2)
  - AUTOIMMUNE HEPATITIS [None]
  - HEPATITIS [None]
